FAERS Safety Report 10417559 (Version 1)
Quarter: 2014Q3

REPORT INFORMATION
  Report Type: Report from Study
  Country: US (occurrence: US)
  Receive Date: 20140829
  Receipt Date: 20140829
  Transmission Date: 20150326
  Serious: Yes (Death, Other)
  Sender: FDA-Public Use
  Company Number: US-ROCHE-1452976

PATIENT

DRUGS (4)
  1. PEGINTERFERON ALFA-2A [Suspect]
     Active Substance: PEGINTERFERON ALFA-2A
     Indication: HEPATITIS C
     Route: 065
  2. RIBAVIRIN. [Suspect]
     Active Substance: RIBAVIRIN
     Indication: HEPATITIS C
     Route: 065
  3. TELAPREVIR [Suspect]
     Active Substance: TELAPREVIR
     Indication: HEPATITIS C
     Route: 065
  4. BOCEPREVIR [Suspect]
     Active Substance: BOCEPREVIR
     Indication: HEPATITIS C
     Route: 065

REACTIONS (13)
  - Gastrointestinal disorder [Unknown]
  - Blood disorder [Unknown]
  - Pancreatitis acute [Unknown]
  - Homicidal ideation [Unknown]
  - Hepatic failure [Unknown]
  - Leukopenia [Unknown]
  - Skin disorder [Unknown]
  - Fatigue [Unknown]
  - Drug reaction with eosinophilia and systemic symptoms [Unknown]
  - Aplastic anaemia [Unknown]
  - Thrombocytopenia [Unknown]
  - Anaemia [Unknown]
  - Sepsis [Fatal]
